FAERS Safety Report 20393786 (Version 4)
Quarter: 2025Q1

REPORT INFORMATION
  Report Type: Spontaneous
  Country: CA (occurrence: CA)
  Receive Date: 20220128
  Receipt Date: 20250328
  Transmission Date: 20250409
  Serious: Yes (Other)
  Sender: CELLTRION
  Company Number: CA-CELLTRION INC.-2022CA000639

PATIENT

DRUGS (16)
  1. RITUXIMAB [Suspect]
     Active Substance: RITUXIMAB
     Indication: Rheumatoid arthritis
     Route: 042
  2. RITUXIMAB [Suspect]
     Active Substance: RITUXIMAB
     Indication: Granulomatosis with polyangiitis
     Route: 042
  3. RITUXIMAB [Suspect]
     Active Substance: RITUXIMAB
     Route: 042
  4. RITUXIMAB [Suspect]
     Active Substance: RITUXIMAB
     Route: 042
  5. RITUXIMAB [Suspect]
     Active Substance: RITUXIMAB
     Route: 042
  6. RITUXIMAB [Suspect]
     Active Substance: RITUXIMAB
     Route: 042
  7. RITUXIMAB [Suspect]
     Active Substance: RITUXIMAB
     Route: 042
  8. TYLENOL [Suspect]
     Active Substance: ACETAMINOPHEN
     Indication: Product used for unknown indication
     Route: 048
  9. ACETAMINOPHEN [Concomitant]
     Active Substance: ACETAMINOPHEN
     Indication: Premedication
     Route: 048
  10. DIPHENHYDRAMINE HYDROCHLORIDE [Concomitant]
     Active Substance: DIPHENHYDRAMINE HYDROCHLORIDE
     Indication: Premedication
     Route: 048
  11. ESOMEPRAZOLE [Concomitant]
     Active Substance: ESOMEPRAZOLE
     Route: 065
  12. METHYLPREDNISOLONE [Concomitant]
     Active Substance: METHYLPREDNISOLONE
     Route: 042
  13. OXYCODONE [Concomitant]
     Active Substance: OXYCODONE
     Route: 065
  14. PREDNISONE [Concomitant]
     Active Substance: PREDNISONE
     Route: 065
  15. TYLENOL REGULAR STRENGTH [Concomitant]
     Active Substance: ACETAMINOPHEN
  16. ZOPICLONE [Concomitant]
     Active Substance: ZOPICLONE
     Route: 065

REACTIONS (27)
  - Breath sounds abnormal [Not Recovered/Not Resolved]
  - Thrombosis [Not Recovered/Not Resolved]
  - Tooth disorder [Not Recovered/Not Resolved]
  - Chest pain [Not Recovered/Not Resolved]
  - Granulomatosis with polyangiitis [Not Recovered/Not Resolved]
  - Malaise [Not Recovered/Not Resolved]
  - Nasal crusting [Not Recovered/Not Resolved]
  - Ocular hyperaemia [Not Recovered/Not Resolved]
  - Productive cough [Not Recovered/Not Resolved]
  - Skin lesion [Not Recovered/Not Resolved]
  - Stress [Not Recovered/Not Resolved]
  - Ear pruritus [Not Recovered/Not Resolved]
  - Back pain [Not Recovered/Not Resolved]
  - Bronchitis [Not Recovered/Not Resolved]
  - Dyspnoea [Not Recovered/Not Resolved]
  - Headache [Not Recovered/Not Resolved]
  - Infusion related reaction [Not Recovered/Not Resolved]
  - Insomnia [Not Recovered/Not Resolved]
  - Lower respiratory tract infection [Not Recovered/Not Resolved]
  - Pain [Not Recovered/Not Resolved]
  - Pneumonia [Not Recovered/Not Resolved]
  - Throat irritation [Not Recovered/Not Resolved]
  - COVID-19 [Not Recovered/Not Resolved]
  - Pruritus [Not Recovered/Not Resolved]
  - Drug ineffective [Not Recovered/Not Resolved]
  - Intentional product use issue [Unknown]
  - Underdose [Unknown]
